FAERS Safety Report 18649733 (Version 1)
Quarter: 2020Q4

REPORT INFORMATION
  Report Type: Spontaneous
  Country: US (occurrence: US)
  Receive Date: 20201222
  Receipt Date: 20201222
  Transmission Date: 20210114
  Serious: Yes (Life-Threatening, Hospitalization)
  Sender: FDA-Public Use
  Company Number: US-MYLANLABS-2020M1103649

PATIENT
  Age: 2 Day
  Sex: Male
  Weight: 3.65 kg

DRUGS (6)
  1. SUGAMMADEX [Suspect]
     Active Substance: SUGAMMADEX
     Indication: NEUROMUSCULAR BLOCKADE REVERSAL
     Dosage: 2.78 MILLIGRAM/KILOGRAM
     Route: 065
  2. SUGAMMADEX [Suspect]
     Active Substance: SUGAMMADEX
     Dosage: 1.39 MILLIGRAM/KILOGRAM TOTAL DOSE: 4.17 MG/KG
     Route: 065
  3. ROPIVACAINE. [Concomitant]
     Active Substance: ROPIVACAINE HYDROCHLORIDE
     Indication: ANAESTHESIA
     Dosage: 2.19 MILLIGRAM/KILOGRAM
     Route: 065
  4. ROCURONIUM [Suspect]
     Active Substance: ROCURONIUM BROMIDE
     Indication: MUSCLE RELAXANT THERAPY
     Dosage: 0.83 MILLIGRAM/KILOGRAM(TOTAL DOSE 1.94 MG/KG
     Route: 065
  5. KETAMINE [Concomitant]
     Active Substance: KETAMINE
     Indication: INDUCTION OF ANAESTHESIA
     Dosage: 1.39 MILLIGRAM/KILOGRAM
     Route: 065
  6. CEFAZOLIN [Concomitant]
     Active Substance: CEFAZOLIN
     Indication: ANTIBIOTIC PROPHYLAXIS
     Route: 065

REACTIONS (2)
  - Respiratory distress [Recovering/Resolving]
  - Recurrence of neuromuscular blockade [Recovering/Resolving]
